FAERS Safety Report 23484469 (Version 1)
Quarter: 2024Q1

REPORT INFORMATION
  Report Type: Spontaneous
  Country: CA (occurrence: CA)
  Receive Date: 20240206
  Receipt Date: 20240206
  Transmission Date: 20240410
  Serious: Yes (Other)
  Sender: FDA-Public Use
  Company Number: CA-JNJFOC-20240203289

PATIENT
  Age: 44 Year
  Sex: Male
  Weight: 135 kg

DRUGS (4)
  1. SIMPONI [Suspect]
     Active Substance: GOLIMUMAB
     Indication: Ankylosing spondylitis
     Route: 058
  2. INFLECTRA [Suspect]
     Active Substance: INFLIXIMAB-DYYB
     Indication: Ankylosing spondylitis
     Dosage: WEEKS 0, 2 ,6 THEN Q 6 WEEKS
     Route: 042
     Dates: start: 20231219
  3. INFLECTRA [Suspect]
     Active Substance: INFLIXIMAB-DYYB
     Dosage: WEEKS 0, 2 ,6 THEN Q 6 WEEKS (675MG, 5MG/KG, AFTER 2 WEEKS (WEEK 2 OF INDUCTION))
     Route: 042
     Dates: start: 20240102
  4. NAPROXEN [Concomitant]
     Active Substance: NAPROXEN
     Dosage: ONGOING

REACTIONS (6)
  - Chondropathy [Recovered/Resolved]
  - Dermatitis atopic [Not Recovered/Not Resolved]
  - Incorrect drug administration rate [Unknown]
  - Taste disorder [Recovered/Resolved]
  - Tongue coated [Recovered/Resolved]
  - Skin disorder [Unknown]

NARRATIVE: CASE EVENT DATE: 20230101
